FAERS Safety Report 16834219 (Version 1)
Quarter: 2019Q3

REPORT INFORMATION
  Report Type: Spontaneous
  Country: US (occurrence: US)
  Receive Date: 20190920
  Receipt Date: 20190920
  Transmission Date: 20191005
  Serious: Yes (Other)
  Sender: FDA-Public Use
  Company Number: US-PFIZER INC-2019400973

PATIENT
  Age: 73 Year
  Sex: Male
  Weight: 90.72 kg

DRUGS (7)
  1. CENTRUM [ASCORBIC ACID;BETACAROTENE;BIOTIN;CALCIUM;CHLORINE;CHROMIUM;C [Concomitant]
     Dosage: UNK
  2. TAFAMIDIS [Suspect]
     Active Substance: TAFAMIDIS MEGLUMINE
     Indication: AMYLOIDOSIS
     Dosage: 81 MG, 1X/DAY
     Route: 048
     Dates: start: 2018
  3. POTASSIUM [Concomitant]
     Active Substance: POTASSIUM
     Dosage: UNK (20 MEQ WITH THE WATER PILL )
  4. TAFAMIDIS [Suspect]
     Active Substance: TAFAMIDIS MEGLUMINE
     Indication: ATRIAL FIBRILLATION
  5. BYSTOLIC [Suspect]
     Active Substance: NEBIVOLOL HYDROCHLORIDE
     Indication: HEART RATE ABNORMAL
     Dosage: UNK, 1X/DAY (25MG TABLET, HALF A TABLET ONCE A DAY)
     Route: 048
     Dates: start: 201908
  6. TRAMADOL. [Concomitant]
     Active Substance: TRAMADOL
     Indication: PAIN
     Dosage: 25 MG, 1X/DAY(25MG ONCE IN A WHILE DEPENDING ON HOW BAD HIS ANKLES HURT BUT WILL TAKE IT ONCE A DAY)
  7. TORSEMED [Concomitant]
     Dosage: UNK UNK, 2X/DAY (100MG TABLET; HALF IN THE MORNING AND HALF IN THE AFTERNOON )

REACTIONS (4)
  - Muscular weakness [Not Recovered/Not Resolved]
  - Hypoaesthesia [Unknown]
  - Atrial fibrillation [Unknown]
  - Atrophy [Unknown]
